FAERS Safety Report 17037022 (Version 1)
Quarter: 2019Q4

REPORT INFORMATION
  Report Type: Spontaneous
  Country: US (occurrence: US)
  Receive Date: 20191115
  Receipt Date: 20191115
  Transmission Date: 20200122
  Serious: No
  Sender: FDA-Public Use
  Company Number: US-PFIZER INC-2019363058

PATIENT
  Age: 64 Year
  Sex: Male
  Weight: 74.84 kg

DRUGS (1)
  1. RELPAX [Suspect]
     Active Substance: ELETRIPTAN HYDROBROMIDE
     Indication: MIGRAINE
     Dosage: 20 MG, UNK
     Route: 048

REACTIONS (2)
  - Recalled product administered [Unknown]
  - Drug ineffective [Unknown]
